FAERS Safety Report 5391375-8 (Version None)
Quarter: 2007Q3

REPORT INFORMATION
  Report Type: 
  Country: None (occurrence: None)
  Receive Date: 20070716
  Receipt Date: 20070716
  Transmission Date: 20080115
  Serious: No
  Sender: FDA-Public Use
  Company Number: None

PATIENT
  Age: 77 Year
  Sex: Male

DRUGS (2)
  1. CIPROFLOXACIN [Suspect]
     Dosage: SOLUTION/DROPS
  2. CIPROFLOXACIN [Suspect]
     Dosage: SUSPENSION/DROPS

REACTIONS (4)
  - DISCOMFORT [None]
  - DRUG DISPENSING ERROR [None]
  - MEDICATION ERROR [None]
  - WRONG DRUG ADMINISTERED [None]
